FAERS Safety Report 14183576 (Version 1)
Quarter: 2017Q4

REPORT INFORMATION
  Report Type: Spontaneous
  Country: HR (occurrence: HR)
  Receive Date: 20171113
  Receipt Date: 20171113
  Transmission Date: 20180321
  Serious: Yes (Hospitalization)
  Sender: FDA-Public Use
  Company Number: HR-TEVA-824731ISR

PATIENT
  Age: 73 Year
  Sex: Female
  Weight: 95 kg

DRUGS (8)
  1. ASPIRIN. [Concomitant]
     Active Substance: ASPIRIN
     Dosage: 100 MILLIGRAM DAILY;
     Route: 048
     Dates: start: 20171024
  2. ASPIRIN. [Concomitant]
     Active Substance: ASPIRIN
     Indication: HYPERTENSION
     Dosage: 100 MILLIGRAM DAILY;
     Route: 048
     Dates: start: 20150408, end: 20171003
  3. AMINOPHYLIN [Concomitant]
     Indication: CHRONIC OBSTRUCTIVE PULMONARY DISEASE
     Dosage: 500 MILLIGRAM DAILY;
     Route: 042
     Dates: start: 20171008, end: 20171024
  4. ULTIBRO BREEZHALER [Concomitant]
     Active Substance: GLYCOPYRRONIUM\INDACATEROL
     Indication: CHRONIC OBSTRUCTIVE PULMONARY DISEASE
     Dosage: 22 MICROGRAM DAILY;
     Route: 055
     Dates: start: 20150804
  5. DALTEPARIN [Concomitant]
     Active Substance: DALTEPARIN
     Indication: HYPERTENSION
     Dosage: 7500 IU (INTERNATIONAL UNIT) DAILY;
     Route: 058
     Dates: start: 20171003, end: 20171024
  6. OXYGEN. [Concomitant]
     Active Substance: OXYGEN
     Indication: CHRONIC OBSTRUCTIVE PULMONARY DISEASE
     Dosage: 1 ML/MIN
     Route: 055
     Dates: start: 20150808
  7. DIUVER [Suspect]
     Active Substance: TORSEMIDE
     Indication: HYPERTENSION
     Dosage: 10 MILLIGRAM DAILY;
     Route: 048
     Dates: start: 20150408, end: 20171003
  8. SILDENAFIL CITRATE;PLACEBO [Suspect]
     Active Substance: SILDENAFIL CITRATE
     Indication: PULMONARY HYPERTENSION
     Dosage: LAST DOSE BEFORE AE ON 02-OCT-2017
     Route: 048
     Dates: start: 20161130

REACTIONS (2)
  - Cardiac failure [Recovered/Resolved]
  - Right ventricular failure [None]

NARRATIVE: CASE EVENT DATE: 20171003
